FAERS Safety Report 16468770 (Version 1)
Quarter: 2019Q2

REPORT INFORMATION
  Report Type: Spontaneous
  Country: US (occurrence: US)
  Receive Date: 20190514
  Receipt Date: 20190514
  Transmission Date: 20190711
  Serious: Yes (Life-Threatening)
  Sender: FDA-Public Use
  Company Number: None

PATIENT
  Age: 42 Year
  Sex: Female
  Weight: 70.76 kg

DRUGS (2)
  1. OCTAGAM IMMUNE GLOBULIN (HUMAN) [Suspect]
     Active Substance: HUMAN IMMUNOGLOBULIN G
     Indication: STEVENS-JOHNSON SYNDROME
     Dosage: ?          OTHER FREQUENCY:EVERY 4 WEEKS ;?
     Route: 042
     Dates: start: 20190405
  2. OCTAGAM IMMUNE GLOBULIN (HUMAN) [Suspect]
     Active Substance: HUMAN IMMUNOGLOBULIN G
     Indication: CROHN^S DISEASE

REACTIONS (6)
  - Throat tightness [None]
  - Dyspnoea [None]
  - Swelling face [None]
  - Urticaria [None]
  - Pharyngeal swelling [None]
  - Secretion discharge [None]

NARRATIVE: CASE EVENT DATE: 20190405
